FAERS Safety Report 10451524 (Version 2)
Quarter: 2014Q4

REPORT INFORMATION
  Report Type: Spontaneous
  Country: TW (occurrence: TW)
  Receive Date: 20140913
  Receipt Date: 20141122
  Transmission Date: 20150528
  Serious: Yes (Hospitalization, Other)
  Sender: FDA-Public Use
  Company Number: TW-ABBVIE-14K-153-1281300-00

PATIENT
  Age: 52 Year
  Sex: Male
  Weight: 70 kg

DRUGS (1)
  1. HUMIRA [Suspect]
     Active Substance: ADALIMUMAB
     Indication: PSORIATIC ARTHROPATHY
     Route: 058
     Dates: start: 20130327

REACTIONS (20)
  - Pulmonary cavitation [Unknown]
  - Cellulitis [Recovering/Resolving]
  - Peripheral swelling [Unknown]
  - Lung infiltration [Recovering/Resolving]
  - Blood potassium increased [Unknown]
  - Sputum discoloured [Unknown]
  - Joint swelling [Unknown]
  - Pulmonary mass [Unknown]
  - Productive cough [Unknown]
  - Panniculitis [Unknown]
  - Fungal infection [Unknown]
  - Lower respiratory tract inflammation [Unknown]
  - Skin mass [Recovered/Resolved]
  - Tuberculosis [Unknown]
  - Erythema [Unknown]
  - Lung consolidation [Unknown]
  - Weight decreased [Unknown]
  - Oedema peripheral [Unknown]
  - Arthralgia [Unknown]
  - Pain in extremity [Unknown]

NARRATIVE: CASE EVENT DATE: 20140506
